FAERS Safety Report 25184936 (Version 1)
Quarter: 2025Q2

REPORT INFORMATION
  Report Type: Report from Study
  Country: GB (occurrence: GB)
  Receive Date: 20250410
  Receipt Date: 20250410
  Transmission Date: 20250717
  Serious: Yes (Other)
  Sender: ALIMERA
  Company Number: GB-ALIMERA SCIENCES LIMITED-GB-IL-2017-003318

PATIENT
  Sex: Male

DRUGS (8)
  1. ILUVIEN [Suspect]
     Active Substance: FLUOCINOLONE ACETONIDE
     Indication: Diabetic retinal oedema
     Dosage: 0.25 LEFT EYE
     Route: 031
     Dates: start: 20140703
  2. BIMATOPROST\TIMOLOL [Concomitant]
     Active Substance: BIMATOPROST\TIMOLOL
     Indication: Glaucoma
  3. DIAMOX SEQUELS [Concomitant]
     Active Substance: ACETAZOLAMIDE
     Indication: Intraocular pressure increased
     Dates: start: 20151208
  4. SIMBRINZA [Concomitant]
     Active Substance: BRIMONIDINE TARTRATE\BRINZOLAMIDE
     Indication: Glaucoma
     Dates: start: 20160301
  5. Vitamin A Eye Gel [Concomitant]
     Indication: Dry eye
     Dates: start: 20160712
  6. Optive Fusion Eye Drops [Concomitant]
     Indication: Dry eye
     Dates: start: 20160712
  7. loteprednoletabonate Eye Drops [Concomitant]
     Indication: Postoperative care
     Dates: start: 20161019
  8. Timolol Tiopex  Eye Gel [Concomitant]
     Indication: Intraocular pressure increased
     Dates: start: 20160510

REACTIONS (2)
  - Choroidal effusion [Recovered/Resolved]
  - Ophthalmic fluid drainage [Recovered/Resolved]

NARRATIVE: CASE EVENT DATE: 20161109
